FAERS Safety Report 23607170 (Version 1)
Quarter: 2024Q1

REPORT INFORMATION
  Report Type: Spontaneous
  Country: US (occurrence: US)
  Receive Date: 20240307
  Receipt Date: 20240307
  Transmission Date: 20240409
  Serious: No
  Sender: FDA-Public Use
  Company Number: US-SA-SAC20240304001354

PATIENT
  Age: 73 Year
  Sex: Male

DRUGS (1)
  1. REZUROCK [Suspect]
     Active Substance: BELUMOSUDIL
     Dosage: 200 MG, BID
     Route: 048

REACTIONS (2)
  - Dyspnoea [Unknown]
  - Inappropriate schedule of product administration [Unknown]
